FAERS Safety Report 20784962 (Version 1)
Quarter: 2022Q2

REPORT INFORMATION
  Report Type: Spontaneous
  Country: US (occurrence: None)
  Receive Date: 20220503
  Receipt Date: 20220503
  Transmission Date: 20220720
  Serious: No
  Sender: FDA-Public Use
  Company Number: None

PATIENT
  Age: 21 Year
  Sex: Female

DRUGS (11)
  1. HUMIRA [Suspect]
     Active Substance: ADALIMUMAB
     Indication: Hidradenitis
     Route: 058
     Dates: start: 20220502
  2. CETIRIZINE [Concomitant]
  3. CLONIDINE [Concomitant]
  4. DOXYCYCLINE HYC [Concomitant]
  5. FLUPHENAZINE [Concomitant]
  6. LATUDA [Concomitant]
  7. LEVOTHYROXINE [Concomitant]
  8. LITHIUM CARONATE [Concomitant]
  9. METFORMIN [Concomitant]
  10. TRAZODONE [Concomitant]
  11. WELLBUTRIN [Concomitant]

REACTIONS (3)
  - Expired product administered [None]
  - COVID-19 [None]
  - Therapy interrupted [None]

NARRATIVE: CASE EVENT DATE: 20220502
